FAERS Safety Report 12671035 (Version 1)
Quarter: 2016Q3

REPORT INFORMATION
  Report Type: Spontaneous
  Country: US (occurrence: None)
  Receive Date: 20160819
  Receipt Date: 20160819
  Transmission Date: 20161109
  Serious: Yes (Other)
  Sender: FDA-Public Use
  Company Number: None

PATIENT
  Age: 68 Year
  Sex: Female
  Weight: 66.23 kg

DRUGS (5)
  1. HYDROCHLOROTHIAZID [Concomitant]
     Active Substance: HYDROCHLOROTHIAZIDE
  2. PREDNISOLONE ACETATE OPHTHALMIC SUSPENSION USP, 1% [Suspect]
     Active Substance: PREDNISOLONE ACETATE
     Indication: SUBRETINAL FLUID
     Route: 047
     Dates: start: 20160613, end: 20160812
  3. TIMOLOL. [Concomitant]
     Active Substance: TIMOLOL
  4. AMLODIPINE [Concomitant]
     Active Substance: AMLODIPINE BESYLATE
  5. PROLENSA [Concomitant]
     Active Substance: BROMFENAC SODIUM

REACTIONS (10)
  - Swelling face [None]
  - Swollen tongue [None]
  - Eye discharge [None]
  - Eye pain [None]
  - Dyspepsia [None]
  - Vomiting [None]
  - Pharyngeal oedema [None]
  - Mouth swelling [None]
  - Oesophageal oedema [None]
  - Headache [None]

NARRATIVE: CASE EVENT DATE: 20160613
